FAERS Safety Report 5662890-4 (Version None)
Quarter: 2008Q1

REPORT INFORMATION
  Report Type: 
  Country: None (occurrence: None)
  Receive Date: 20080313
  Receipt Date: 20080304
  Transmission Date: 20080703
  Serious: Yes (Other)
  Sender: FDA-Public Use
  Company Number: US-WYE-H03029608

PATIENT

DRUGS (1)
  1. ROBITUSSIN DM [Suspect]
     Indication: DRUG ABUSE
     Dosage: UNKNOWN
     Route: 048

REACTIONS (1)
  - DRUG ABUSE [None]
